FAERS Safety Report 10011688 (Version 1)
Quarter: 2014Q1

REPORT INFORMATION
  Report Type: Spontaneous
  Country: US (occurrence: US)
  Receive Date: 20140314
  Receipt Date: 20140314
  Transmission Date: 20141002
  Serious: Yes (Other)
  Sender: FDA-Public Use
  Company Number: US-ASTRAZENECA-2014SE16674

PATIENT
  Age: 85 Year
  Sex: Male
  Weight: 63.5 kg

DRUGS (15)
  1. ATENOLOL [Suspect]
     Indication: CARDIAC DISORDER
     Route: 048
  2. CASODEX [Suspect]
     Indication: PROSTATE CANCER
     Route: 048
     Dates: start: 20120321, end: 201204
  3. LUPRON [Suspect]
  4. PRESERVISION [Concomitant]
     Indication: MACULAR DEGENERATION
     Route: 048
     Dates: start: 2012
  5. ZOCOR [Concomitant]
     Indication: BLOOD CHOLESTEROL ABNORMAL
     Route: 048
  6. FISH OIL [Concomitant]
     Indication: CARDIAC DISORDER
     Route: 048
  7. SYNTHROID [Concomitant]
     Indication: THYROID DISORDER
     Route: 048
  8. LORAZEPAM [Concomitant]
     Indication: SLEEP DISORDER
     Route: 048
  9. CALCIUM PLUS VITAMIN D [Concomitant]
     Indication: BONE DISORDER
     Dosage: 600MG 400MG DAILY
     Route: 048
  10. PROTONIX [Concomitant]
     Indication: GASTRIC DISORDER
     Route: 048
  11. ASPIRIN [Concomitant]
     Indication: CARDIOVASCULAR DISORDER
     Route: 048
  12. SUCRALFATE [Concomitant]
     Indication: ABDOMINAL DISCOMFORT
     Route: 048
  13. INDUR [Concomitant]
     Indication: ANGINA PECTORIS
     Route: 048
     Dates: start: 2012
  14. PROCRIT [Concomitant]
     Indication: BLOOD DISORDER
     Dosage: 10000-40000U/ML PRN
  15. B12 [Concomitant]
     Indication: HYPOVITAMINOSIS
     Dates: start: 2012

REACTIONS (6)
  - Red blood cell abnormality [Recovering/Resolving]
  - Macular degeneration [Not Recovered/Not Resolved]
  - Angina pectoris [Recovering/Resolving]
  - Asthenia [Unknown]
  - Visual acuity reduced [Not Recovered/Not Resolved]
  - Anaemia [Recovering/Resolving]
